FAERS Safety Report 5482293-5 (Version None)
Quarter: 2007Q4

REPORT INFORMATION
  Report Type: 
  Country: None (occurrence: None)
  Receive Date: 20071011
  Receipt Date: 20071002
  Transmission Date: 20080405
  Serious: Yes (Other)
  Sender: FDA-Public Use
  Company Number: US-JNJFOC-20071001177

PATIENT
  Sex: Female
  Weight: 58.06 kg

DRUGS (6)
  1. TOPAMAX [Suspect]
     Indication: MIGRAINE PROPHYLAXIS
     Route: 048
  2. ANTIDEPRESSANT [Concomitant]
  3. PREMARIN [Concomitant]
  4. PROGESTERONE [Concomitant]
  5. GLUCOSAMINE [Concomitant]
  6. MULTI-VITAMIN [Concomitant]

REACTIONS (7)
  - AMNESIA [None]
  - DISORIENTATION [None]
  - FOOD AVERSION [None]
  - HEAT STROKE [None]
  - SOMNOLENCE [None]
  - SPEECH DISORDER [None]
  - WEIGHT DECREASED [None]
